FAERS Safety Report 7026456-6 (Version None)
Quarter: 2010Q4

REPORT INFORMATION
  Report Type: 
  Country: None (occurrence: None)
  Receive Date: 20101004
  Receipt Date: 20100921
  Transmission Date: 20110411
  Serious: Yes (Hospitalization, Other)
  Sender: FDA-Public Use
  Company Number: FR-ELI_LILLY_AND_COMPANY-FR201009005401

PATIENT
  Sex: Male

DRUGS (12)
  1. ZYPREXA [Suspect]
     Dosage: 5 MG, DAILY (1/D)
     Route: 048
     Dates: start: 20100404, end: 20100731
  2. SOTALEX [Concomitant]
     Dosage: 80 MG, DAILY (1/D)
     Route: 048
  3. ARICEPT [Concomitant]
     Dosage: 5 MG, DAILY (1/D)
     Route: 048
     Dates: start: 20100404, end: 20100731
  4. XANAX [Concomitant]
     Dosage: 0.5 MG, UNK
  5. ACETAMINOPHEN [Concomitant]
     Dosage: 500 MG, UNK
  6. NITROGLYCERIN [Concomitant]
     Dosage: 10 MG, UNK
  7. FORLAX [Concomitant]
  8. KARDEGIC [Concomitant]
     Dosage: 75 MG, UNK
  9. OMIX [Concomitant]
     Dosage: 0.4 MG, UNK
  10. PROTELOS [Concomitant]
  11. UMULINE PROFIL 30 [Concomitant]
  12. EDUCTYL [Concomitant]

REACTIONS (9)
  - ARRHYTHMIA [None]
  - BLOOD GLUCOSE DECREASED [None]
  - CREPITATIONS [None]
  - ELECTROCARDIOGRAM QT PROLONGED [None]
  - HYPOTENSION [None]
  - LOSS OF CONSCIOUSNESS [None]
  - OXYGEN SATURATION DECREASED [None]
  - PALLOR [None]
  - SYNCOPE [None]
